FAERS Safety Report 6448791-2 (Version None)
Quarter: 2009Q4

REPORT INFORMATION
  Report Type: 
  Country: None (occurrence: None)
  Receive Date: 20091120
  Receipt Date: 20091111
  Transmission Date: 20100525
  Serious: Yes (Other)
  Sender: FDA-Public Use
  Company Number: PHHY2009IL46779

PATIENT
  Age: 70 Year
  Sex: Female
  Weight: 48 kg

DRUGS (1)
  1. ACLASTA [Suspect]
     Indication: OSTEOPOROSIS
     Dosage: ONCE, UNK

REACTIONS (5)
  - COMPUTERISED TOMOGRAM ABNORMAL [None]
  - INFLUENZA LIKE ILLNESS [None]
  - PAIN [None]
  - PERITONEAL DISORDER [None]
  - VASODILATATION [None]
